FAERS Safety Report 8002505-3 (Version None)
Quarter: 2011Q4

REPORT INFORMATION
  Report Type: 
  Country: None (occurrence: None)
  Receive Date: 20111222
  Receipt Date: 20111219
  Transmission Date: 20120403
  Serious: Yes (Hospitalization)
  Sender: FDA-Public Use
  Company Number: JP-BRISTOL-MYERS SQUIBB COMPANY-16309395

PATIENT
  Age: 41 Year
  Sex: Female

DRUGS (10)
  1. PREDNISOLONE [Concomitant]
     Indication: RHEUMATOID ARTHRITIS
     Route: 048
  2. OMEPRAZOLE [Concomitant]
     Indication: PROPHYLAXIS
  3. VOLTAREN [Concomitant]
     Indication: RHEUMATOID ARTHRITIS
  4. SELBEX [Concomitant]
     Indication: PROPHYLAXIS
  5. LENDORMIN [Concomitant]
     Indication: INSOMNIA
  6. ORENCIA [Suspect]
     Indication: RHEUMATOID ARTHRITIS
     Dosage: 10MAR2011,44KG.
     Route: 042
     Dates: start: 20110224
  7. JUVELA [Concomitant]
     Indication: PERIPHERAL VASCULAR DISORDER
  8. ATARAX [Concomitant]
     Indication: URTICARIA
  9. TOYOFAROL [Concomitant]
     Indication: OSTEOPOROSIS
  10. PRORENAL [Concomitant]
     Indication: PERIPHERAL VASCULAR DISORDER

REACTIONS (1)
  - RHEUMATOID VASCULITIS [None]
